FAERS Safety Report 18895094 (Version 3)
Quarter: 2022Q1

REPORT INFORMATION
  Report Type: Report from Study
  Country: US (occurrence: US)
  Receive Date: 20210215
  Receipt Date: 20220119
  Transmission Date: 20220423
  Serious: Yes (Other)
  Sender: FDA-Public Use
  Company Number: US-NOVARTISTESTPH-NVSC2021US030309

PATIENT
  Sex: Female

DRUGS (1)
  1. PIQRAY [Suspect]
     Active Substance: ALPELISIB
     Indication: Product used for unknown indication
     Dosage: UNK
     Route: 048

REACTIONS (9)
  - Neoplasm malignant [Unknown]
  - Liver disorder [Unknown]
  - Herpes simplex [Unknown]
  - Constipation [Unknown]
  - Blood pressure increased [Unknown]
  - Fatigue [Unknown]
  - Decreased appetite [Unknown]
  - Blood glucose increased [Unknown]
  - Dry mouth [Unknown]
